FAERS Safety Report 6263046-7 (Version None)
Quarter: 2009Q3

REPORT INFORMATION
  Report Type: 
  Country: None (occurrence: None)
  Receive Date: 20090708
  Receipt Date: 20090708
  Transmission Date: 20100115
  Serious: Yes (Hospitalization)
  Sender: FDA-Public Use
  Company Number: None

PATIENT
  Age: 80 Year
  Sex: Male
  Weight: 86.09 kg

DRUGS (2)
  1. GLIPIZIDE [Suspect]
     Indication: DIABETES MELLITUS
     Dosage: 5 MG EVERY DAY PO
     Route: 048
     Dates: start: 20070531, end: 20080601
  2. IBUPROFEN [Suspect]
     Dosage: 500 MG TID PO
     Route: 048
     Dates: start: 20080531, end: 20080601

REACTIONS (4)
  - APHASIA [None]
  - BACK PAIN [None]
  - CONFUSIONAL STATE [None]
  - HYPOGLYCAEMIA [None]
